FAERS Safety Report 5723704-7 (Version None)
Quarter: 2008Q2

REPORT INFORMATION
  Report Type: 
  Country: None (occurrence: None)
  Receive Date: 20080429
  Receipt Date: 20080429
  Transmission Date: 20081010
  Serious: Yes (Hospitalization)
  Sender: FDA-Public Use
  Company Number: None

PATIENT
  Age: 83 Year
  Sex: Male
  Weight: 53.5244 kg

DRUGS (7)
  1. ALIMTA [Suspect]
     Indication: NEOPLASM MALIGNANT
     Dosage: IV/500 MG/M2 /Q3WKS
     Route: 042
     Dates: start: 20070606, end: 20080402
  2. AVASTIN [Suspect]
     Indication: NEOPLASM MALIGNANT
     Dosage: IV/15 MG/KG /Q3WKS
     Route: 042
     Dates: start: 20070606, end: 20080402
  3. FOLIC ACID [Concomitant]
  4. DEXAMETHASONE [Concomitant]
  5. VIT B12 [Concomitant]
  6. COLACE [Concomitant]
  7. NORTRIPTYLINE HCL [Concomitant]

REACTIONS (2)
  - HAEMOPTYSIS [None]
  - LOBAR PNEUMONIA [None]
